FAERS Safety Report 14757221 (Version 1)
Quarter: 2018Q2

REPORT INFORMATION
  Report Type: Report from Study
  Country: US (occurrence: US)
  Receive Date: 20180413
  Receipt Date: 20180413
  Transmission Date: 20180711
  Serious: Yes (Hospitalization)
  Sender: FDA-Public Use
  Company Number: US-JNJFOC-20180344921

PATIENT
  Age: 69 Year
  Sex: Female

DRUGS (13)
  1. IMBRUVICA [Suspect]
     Active Substance: IBRUTINIB
     Indication: CHRONIC LYMPHOCYTIC LEUKAEMIA
     Route: 048
     Dates: start: 20170426
  2. AMBIEN [Concomitant]
     Active Substance: ZOLPIDEM TARTRATE
  3. PREDNISONE. [Concomitant]
     Active Substance: PREDNISONE
  4. BISOPROLOL [Concomitant]
     Active Substance: BISOPROLOL
  5. LOTEMAX [Concomitant]
     Active Substance: LOTEPREDNOL ETABONATE
  6. TYLENOL [Concomitant]
     Active Substance: ACETAMINOPHEN
  7. RESTASIS [Concomitant]
     Active Substance: CYCLOSPORINE
  8. ALBUTEROL. [Concomitant]
     Active Substance: ALBUTEROL
  9. TRAMADOL. [Concomitant]
     Active Substance: TRAMADOL
  10. VERELAN [Concomitant]
     Active Substance: VERAPAMIL HYDROCHLORIDE
  11. TRAZODONE [Concomitant]
     Active Substance: TRAZODONE HYDROCHLORIDE
  12. FLONASE [Concomitant]
     Active Substance: FLUTICASONE PROPIONATE
  13. ZOLOFT [Concomitant]
     Active Substance: SERTRALINE HYDROCHLORIDE

REACTIONS (5)
  - Pulmonary mass [Unknown]
  - Pneumonia streptococcal [Unknown]
  - Lung infection [Unknown]
  - Pneumothorax [Unknown]
  - Pulmonary haemorrhage [Unknown]

NARRATIVE: CASE EVENT DATE: 20180319
